FAERS Safety Report 15860876 (Version 2)
Quarter: 2019Q1

REPORT INFORMATION
  Report Type: Report from Study
  Country: FR (occurrence: FR)
  Receive Date: 20190124
  Receipt Date: 20190227
  Transmission Date: 20190417
  Serious: Yes (Hospitalization)
  Sender: FDA-Public Use
  Company Number: FR-ROCHE-2250761

PATIENT
  Age: 80 Year
  Sex: Male
  Weight: 67 kg

DRUGS (8)
  1. INEXIUM [Concomitant]
     Active Substance: ESOMEPRAZOLE
     Route: 048
  2. IDELALISIB [Suspect]
     Active Substance: IDELALISIB
     Indication: WALDENSTROM^S MACROGLOBULINAEMIA
     Route: 048
     Dates: start: 20180212, end: 20180906
  3. KARDEGIC [Concomitant]
     Active Substance: ASPIRIN DL-LYSINE
     Indication: ANTICOAGULANT THERAPY
     Route: 048
  4. IDELALISIB [Suspect]
     Active Substance: IDELALISIB
     Route: 048
     Dates: start: 20181105
  5. ZELITREX [Concomitant]
     Active Substance: VALACYCLOVIR HYDROCHLORIDE
     Route: 048
  6. CANDESARTAN. [Concomitant]
     Active Substance: CANDESARTAN
     Indication: HYPERTENSION
     Route: 048
  7. BACTRIM [Concomitant]
     Active Substance: SULFAMETHOXAZOLE\TRIMETHOPRIM
     Indication: PROPHYLAXIS
     Dosage: 800/160 MG THREE TIMES IN WEEK
     Route: 048
  8. OBINUTUZUMAB. [Suspect]
     Active Substance: OBINUTUZUMAB
     Indication: WALDENSTROM^S MACROGLOBULINAEMIA
     Route: 041
     Dates: start: 20180212, end: 20180709

REACTIONS (2)
  - Interstitial lung disease [Unknown]
  - Bronchopulmonary aspergillosis [Unknown]

NARRATIVE: CASE EVENT DATE: 20180814
